FAERS Safety Report 19164020 (Version 1)
Quarter: 2021Q2

REPORT INFORMATION
  Report Type: Report from Study
  Country: CN (occurrence: CN)
  Receive Date: 20210421
  Receipt Date: 20210421
  Transmission Date: 20210717
  Serious: Yes (Hospitalization)
  Sender: FDA-Public Use
  Company Number: NVSC2021CN083235

PATIENT
  Age: 34 Year
  Sex: Female

DRUGS (1)
  1. ZYKADIA [Suspect]
     Active Substance: CERITINIB
     Indication: NON-SMALL CELL LUNG CANCER
     Dosage: 450 MG, QD
     Route: 048
     Dates: start: 20200507

REACTIONS (2)
  - Pneumonitis [Not Recovered/Not Resolved]
  - Pulmonary arterial pressure decreased [Not Recovered/Not Resolved]

NARRATIVE: CASE EVENT DATE: 20210407
